FAERS Safety Report 6618470-7 (Version None)
Quarter: 2010Q1

REPORT INFORMATION
  Report Type: 
  Country: None (occurrence: None)
  Receive Date: 20100223
  Receipt Date: 20091103
  Transmission Date: 20100710
  Serious: No
  Sender: FDA-Public Use
  Company Number: 8054091

PATIENT
  Sex: Female

DRUGS (1)
  1. CERTOLIZUMAB PEGOL [Suspect]
     Dosage: PATIENT HAD A TOTAL OF 4 DOSES SUBCUTANEOUS
     Route: 058
     Dates: end: 20091009

REACTIONS (1)
  - DRUG INEFFECTIVE [None]
